FAERS Safety Report 4775262-1 (Version None)
Quarter: 2005Q3

REPORT INFORMATION
  Report Type: 
  Country: None (occurrence: None)
  Receive Date: 20050921
  Receipt Date: 20050921
  Transmission Date: 20060218
  Serious: Yes (Other)
  Sender: FDA-Public Use
  Company Number: None

PATIENT
  Age: 57 Year
  Sex: Male

DRUGS (4)
  1. OXALIPLATIN [Suspect]
     Indication: COLON CANCER
     Dosage: OXALPLATIN 133 MG IV
     Route: 042
     Dates: start: 20050427
  2. KYTRIL [Concomitant]
  3. LEUCOVERIN [Concomitant]
  4. FLUOROURACIL [Concomitant]

REACTIONS (5)
  - INFUSION RELATED REACTION [None]
  - PRURITUS [None]
  - PYREXIA [None]
  - RASH [None]
  - URTICARIA [None]
